FAERS Safety Report 19973543 (Version 1)
Quarter: 2021Q4

REPORT INFORMATION
  Report Type: Spontaneous
  Country: JP (occurrence: JP)
  Receive Date: 20211020
  Receipt Date: 20211020
  Transmission Date: 20220303
  Serious: Yes (Other)
  Sender: FDA-Public Use
  Company Number: JP-LUPIN PHARMACEUTICALS INC.-2021-20053

PATIENT
  Age: 87 Year
  Sex: Male

DRUGS (3)
  1. IMATINIB MESYLATE [Suspect]
     Active Substance: IMATINIB MESYLATE
     Indication: Philadelphia chromosome positive
     Dosage: 300 MILLIGRAM, QD
     Route: 065
     Dates: start: 201802
  2. DASATINIB [Suspect]
     Active Substance: DASATINIB
     Indication: Philadelphia chromosome positive
     Dosage: 50 MILLIGRAM, QD
     Route: 065
     Dates: start: 2018, end: 2018
  3. PREDNISOLONE [Concomitant]
     Active Substance: PREDNISOLONE
     Indication: Philadelphia chromosome positive
     Dosage: 40 MG/M2
     Route: 065
     Dates: start: 201801

REACTIONS (3)
  - Interstitial lung disease [Recovered/Resolved]
  - Electrocardiogram QT prolonged [Recovered/Resolved]
  - Acute kidney injury [Recovered/Resolved]

NARRATIVE: CASE EVENT DATE: 20180101
